FAERS Safety Report 5367496-2 (Version None)
Quarter: 2007Q2

REPORT INFORMATION
  Report Type: 
  Country: None (occurrence: None)
  Receive Date: 20070622
  Receipt Date: 20061024
  Transmission Date: 20071010
  Serious: No
  Sender: FDA-Public Use
  Company Number: US-ASTRAZENECA-2006UW20533

PATIENT
  Age: 3 Month
  Sex: Female

DRUGS (3)
  1. PULMICORT RESPULES [Suspect]
     Indication: COUGH
     Dosage: 0.25MG/2ML
     Route: 055
     Dates: start: 20061016
  2. PULMICORT RESPULES [Suspect]
     Indication: ASTHMA
     Dosage: 0.25MG/2ML
     Route: 055
     Dates: start: 20061016
  3. ALBUTEROL [Concomitant]

REACTIONS (2)
  - FEELING ABNORMAL [None]
  - LETHARGY [None]
